FAERS Safety Report 5060720-5 (Version None)
Quarter: 2006Q3

REPORT INFORMATION
  Report Type: 
  Country: None (occurrence: None)
  Receive Date: 20060719
  Receipt Date: 20060719
  Transmission Date: 20061208
  Serious: Yes (Other)
  Sender: FDA-Public Use
  Company Number: None

PATIENT
  Age: 53 Year
  Sex: Female

DRUGS (1)
  1. VIVELLE [Suspect]
     Indication: HYSTERECTOMY
     Dosage: APPLY PATCH TWICE WEEKLY
     Dates: start: 20040401

REACTIONS (1)
  - PHARMACEUTICAL PRODUCT COMPLAINT [None]
